FAERS Safety Report 23081076 (Version 3)
Quarter: 2023Q4

REPORT INFORMATION
  Report Type: Report from Study
  Country: CN (occurrence: CN)
  Receive Date: 20231018
  Receipt Date: 20231101
  Transmission Date: 20240110
  Serious: Yes (Death, Life-Threatening)
  Sender: FDA-Public Use
  Company Number: CN-PFIZER INC-PV202300168079

PATIENT
  Age: 50 Year
  Sex: Male
  Weight: 74 kg

DRUGS (6)
  1. CYTARABINE [Suspect]
     Active Substance: CYTARABINE
     Indication: Acute myeloid leukaemia
     Dosage: 1.8 G, 1X/DAY
     Route: 041
     Dates: start: 20230918, end: 20230922
  2. INVESTIGATIONAL PRODUCT [Suspect]
     Active Substance: INVESTIGATIONAL PRODUCT
     Indication: Acute myeloid leukaemia
     Dosage: UNK UNK, QD, MAINTAIN TREATMENT FOR 20 MINUTES
     Route: 041
     Dates: start: 20230917, end: 20230917
  3. INVESTIGATIONAL PRODUCT [Suspect]
     Active Substance: INVESTIGATIONAL PRODUCT
     Dosage: UNK, EVERY 12 HOURS(Q12H)
     Route: 041
     Dates: start: 20230918, end: 20230924
  4. MITOXANTRONE [Suspect]
     Active Substance: MITOXANTRONE HYDROCHLORIDE
     Indication: Acute myeloid leukaemia
     Dosage: 10.8 MG, QD (25/12.5MG/ML)
     Route: 041
     Dates: start: 20230918, end: 20230922
  5. ETOPOSIDE [Suspect]
     Active Substance: ETOPOSIDE
     Indication: Acute myeloid leukaemia
     Dosage: 0.18 G, QD (0.1/5 G/ML)
     Route: 041
     Dates: start: 20230918, end: 20230920
  6. HERBALS [Concomitant]
     Active Substance: HERBALS
     Dosage: BEAD
     Dates: start: 20230924, end: 20231004

REACTIONS (1)
  - Cardiac arrest [Fatal]

NARRATIVE: CASE EVENT DATE: 20231004
